FAERS Safety Report 15081983 (Version 1)
Quarter: 2018Q2

REPORT INFORMATION
  Report Type: Spontaneous
  Country: IT (occurrence: IT)
  Receive Date: 20180628
  Receipt Date: 20180628
  Transmission Date: 20180711
  Serious: Yes (Other)
  Sender: FDA-Public Use
  Company Number: IT-BIOGEN-2018BI00600048

PATIENT
  Age: 43 Year
  Sex: Female

DRUGS (4)
  1. TECFIDERA [Suspect]
     Active Substance: DIMETHYL FUMARATE
     Indication: RELAPSING-REMITTING MULTIPLE SCLEROSIS
     Route: 048
     Dates: start: 20160701, end: 20180426
  2. SYNTROXINE [Concomitant]
     Indication: HYPOTHYROIDISM
     Dosage: 50 MCG FROM MONDAY TO FRIDAY, AND AT 75 MCG FROM SATURDAY TO SUNDAY
     Route: 065
  3. SYNTROXINE [Concomitant]
     Dosage: 50 MCG FROM MONDAY TO FRIDAY, AND AT 75 MCG FROM SATURDAY TO SUNDAY
     Route: 065
  4. DIDROGYL [Concomitant]
     Active Substance: CALCIFEDIOL
     Indication: VITAMIN D DEFICIENCY
     Route: 065

REACTIONS (2)
  - Hypertransaminasaemia [Not Recovered/Not Resolved]
  - Leukopenia [Not Recovered/Not Resolved]

NARRATIVE: CASE EVENT DATE: 20180413
